FAERS Safety Report 8015745-4 (Version None)
Quarter: 2011Q4

REPORT INFORMATION
  Report Type: 
  Country: None (occurrence: None)
  Receive Date: 20111230
  Receipt Date: 20111226
  Transmission Date: 20120403
  Serious: Yes (Hospitalization)
  Sender: FDA-Public Use
  Company Number: PHHY2011VE113097

PATIENT
  Sex: Female

DRUGS (5)
  1. CALCIUM ACETATE [Concomitant]
     Dosage: 2 DF, QD
  2. HUMIRA [Concomitant]
     Dosage: 1 INJECTION EACH FIFTEEN DAYS
  3. ZOLEDRONOC ACID [Suspect]
     Indication: OSTEOPOROSIS
     Dosage: 5 MG, ONCE A YEAR
     Route: 042
     Dates: start: 20110202
  4. FOLIC ACID [Concomitant]
     Dosage: 1 DF DAILY
  5. METHOTREXATE [Concomitant]
     Dosage: UNK UKN, UNK

REACTIONS (1)
  - BRONCHITIS [None]
